FAERS Safety Report 5044609-3 (Version None)
Quarter: 2006Q3

REPORT INFORMATION
  Report Type: 
  Country: None (occurrence: None)
  Receive Date: 20060706
  Receipt Date: 20060614
  Transmission Date: 20061208
  Serious: Yes (Death, Hospitalization)
  Sender: FDA-Public Use
  Company Number: DE-SANOFI-SYNTHELABO-A04200600626

PATIENT
  Sex: Male
  Weight: 84 kg

DRUGS (8)
  1. FLUOROURACIL [Suspect]
     Indication: COLON CANCER METASTATIC
     Route: 041
     Dates: start: 20060511, end: 20060511
  2. ELOXATIN [Suspect]
     Indication: COLON CANCER METASTATIC
     Route: 041
     Dates: start: 20060511, end: 20060511
  3. FOLINIC ACID [Suspect]
     Indication: COLON CANCER METASTATIC
     Route: 041
     Dates: start: 20060511, end: 20060511
  4. ANTIEMETICS [Concomitant]
     Indication: PROPHYLAXIS OF NAUSEA AND VOMITING
     Route: 065
     Dates: start: 20060501, end: 20060501
  5. MAGNESIUM [Concomitant]
     Indication: PREMEDICATION
     Route: 065
     Dates: start: 20060501, end: 20060501
  6. CALCIUM GLUCONATE [Concomitant]
     Indication: PREMEDICATION
     Route: 065
     Dates: start: 20060501, end: 20060501
  7. POTASSIUM [Concomitant]
     Indication: PREMEDICATION
     Route: 065
     Dates: start: 20060501, end: 20060501
  8. FLUID THERAPY [Concomitant]
     Indication: PREMEDICATION
     Route: 065
     Dates: start: 20060501, end: 20060501

REACTIONS (5)
  - ABDOMINAL PAIN [None]
  - HAEMOLYTIC URAEMIC SYNDROME [None]
  - PETECHIAE [None]
  - PLATELET COUNT DECREASED [None]
  - RENAL FAILURE [None]
